FAERS Safety Report 12480325 (Version 1)
Quarter: 2016Q2

REPORT INFORMATION
  Report Type: Spontaneous
  Country: US (occurrence: US)
  Receive Date: 20160620
  Receipt Date: 20160620
  Transmission Date: 20160815
  Serious: Yes (Other)
  Sender: FDA-Public Use
  Company Number: US-ALEMBIC PHARMACUETICALS LIMITED-2016SCAL000484

PATIENT

DRUGS (1)
  1. FAMOTIDINE. [Suspect]
     Active Substance: FAMOTIDINE
     Indication: PRODUCT USED FOR UNKNOWN INDICATION
     Dosage: 40 MG, QD THERAPY FOR 48 WEEKS

REACTIONS (6)
  - Cerebrovascular accident [Unknown]
  - Fracture [Unknown]
  - Acute myocardial infarction [Unknown]
  - Diarrhoea [Unknown]
  - Pneumonia [Unknown]
  - Gastrointestinal disorder [Unknown]
